FAERS Safety Report 9839830 (Version 3)
Quarter: 2014Q1

REPORT INFORMATION
  Report Type: Spontaneous
  Country: US (occurrence: US)
  Receive Date: 20140124
  Receipt Date: 20140203
  Transmission Date: 20141002
  Serious: Yes (Life-Threatening, Disabling)
  Sender: FDA-Public Use
  Company Number: US-009507513-1401USA010443

PATIENT
  Sex: 0

DRUGS (3)
  1. EMEND [Suspect]
     Indication: CHEMOTHERAPY
     Dosage: UNK
     Route: 042
     Dates: start: 20140107, end: 201401
  2. CARBOPLATIN [Suspect]
     Dosage: UNK
     Dates: start: 20140107, end: 201401
  3. PACLITAXEL [Suspect]
     Dosage: UNK
     Dates: start: 20140107, end: 201401

REACTIONS (1)
  - Anaphylactic reaction [Unknown]
